FAERS Safety Report 23676942 (Version 2)
Quarter: 2024Q2

REPORT INFORMATION
  Report Type: Spontaneous
  Country: IL (occurrence: IL)
  Receive Date: 20240327
  Receipt Date: 20240401
  Transmission Date: 20240716
  Serious: Yes (Death, Other)
  Sender: FDA-Public Use
  Company Number: IL-BoehringerIngelheim-2024-BI-017576

PATIENT
  Age: 84 Year
  Sex: Male

DRUGS (1)
  1. OFEV [Suspect]
     Active Substance: NINTEDANIB
     Indication: Idiopathic pulmonary fibrosis
     Dates: start: 202402, end: 202403

REACTIONS (3)
  - Hypoxia [Fatal]
  - Pulmonary embolism [Recovered/Resolved]
  - Arrhythmia supraventricular [Not Recovered/Not Resolved]
